FAERS Safety Report 22125766 (Version 1)
Quarter: 2023Q1

REPORT INFORMATION
  Report Type: Spontaneous
  Country: US (occurrence: US)
  Receive Date: 20230322
  Receipt Date: 20230322
  Transmission Date: 20230418
  Serious: Yes (Other)
  Sender: FDA-Public Use
  Company Number: US-PFIZER INC-PV202300053151

PATIENT

DRUGS (2)
  1. BOSUTINIB [Suspect]
     Active Substance: BOSUTINIB
     Dosage: 200 MG
  2. BOSUTINIB [Suspect]
     Active Substance: BOSUTINIB
     Dosage: 100 MG

REACTIONS (2)
  - Cardiac failure [Unknown]
  - Neoplasm progression [Unknown]
